FAERS Safety Report 12682426 (Version 1)
Quarter: 2016Q3

REPORT INFORMATION
  Report Type: Spontaneous
  Country: KE (occurrence: KE)
  Receive Date: 20160825
  Receipt Date: 20160825
  Transmission Date: 20161109
  Serious: Yes (Hospitalization)
  Sender: FDA-Public Use
  Company Number: KE-ROCHE-1818799

PATIENT
  Sex: Male

DRUGS (1)
  1. ALTUZAN [Suspect]
     Active Substance: BEVACIZUMAB
     Indication: COLORECTAL CANCER METASTATIC
     Route: 042
     Dates: start: 201508

REACTIONS (4)
  - Heart rate increased [Unknown]
  - Lower respiratory tract congestion [Unknown]
  - Headache [Unknown]
  - Dyspnoea [Unknown]
